FAERS Safety Report 9432414 (Version 6)
Quarter: 2014Q3

REPORT INFORMATION
  Report Type: Spontaneous
  Country: US (occurrence: US)
  Receive Date: 20130731
  Receipt Date: 20140724
  Transmission Date: 20150326
  Serious: Yes (Disabling, Other)
  Sender: FDA-Public Use
  Company Number: US-009507513-1307USA014866

PATIENT
  Sex: Female
  Weight: 58.96 kg

DRUGS (2)
  1. ALENDRONATE SODIUM. [Suspect]
     Active Substance: ALENDRONATE SODIUM
     Indication: OSTEOPOROSIS
     Dosage: 70 MG, QW
     Route: 048
     Dates: start: 20080213
  2. FOSAMAX [Suspect]
     Active Substance: ALENDRONATE SODIUM
     Indication: OSTEOPOROSIS
     Dosage: 10 MG, QD
     Route: 048
     Dates: start: 1999, end: 2009

REACTIONS (20)
  - Chronic obstructive pulmonary disease [Unknown]
  - Groin pain [Unknown]
  - Hypersomnia [Unknown]
  - Osteopenia [Unknown]
  - Osteoarthritis [Unknown]
  - Scoliosis [Unknown]
  - Femur fracture [Not Recovered/Not Resolved]
  - Kyphoscoliosis [Unknown]
  - Musculoskeletal discomfort [Unknown]
  - Arthralgia [Unknown]
  - Fractured ischium [Unknown]
  - Nocturia [Unknown]
  - Type V hyperlipidaemia [Unknown]
  - Asthenia [Unknown]
  - Spinal osteoarthritis [Unknown]
  - Chondrocalcinosis [Unknown]
  - Enchondroma [Unknown]
  - Bone cyst [Unknown]
  - Injection site erythema [Unknown]
  - Enthesopathy [Unknown]

NARRATIVE: CASE EVENT DATE: 199908
